FAERS Safety Report 20810709 (Version 1)
Quarter: 2022Q2

REPORT INFORMATION
  Report Type: Spontaneous
  Country: CZ (occurrence: CZ)
  Receive Date: 20220510
  Receipt Date: 20220510
  Transmission Date: 20220721
  Serious: Yes (Other)
  Sender: FDA-Public Use
  Company Number: CZ-CELLTRION HEALTHCARE HUNGARY KFT-2021CZ015079

PATIENT

DRUGS (10)
  1. LENALIDOMIDE [Suspect]
     Active Substance: LENALIDOMIDE
     Indication: Marginal zone lymphoma
  2. OXALIPLATIN [Suspect]
     Active Substance: OXALIPLATIN
     Indication: Marginal zone lymphoma
     Dosage: UNK
     Dates: start: 202104
  3. RITUXIMAB [Suspect]
     Active Substance: RITUXIMAB
     Indication: Marginal zone lymphoma
     Dosage: UNK
     Dates: start: 202011
  4. RITUXIMAB [Suspect]
     Active Substance: RITUXIMAB
  5. GEMCITABINE [Suspect]
     Active Substance: GEMCITABINE
     Indication: Marginal zone lymphoma
     Dosage: UNK
     Dates: start: 202104
  6. MABTHERA [Suspect]
     Active Substance: RITUXIMAB
     Indication: Marginal zone lymphoma
  7. MABTHERA [Suspect]
     Active Substance: RITUXIMAB
  8. CYCLOPHOSPHAMIDE\DOXORUBICIN\PREDNISONE\VINCRISTINE [Suspect]
     Active Substance: CYCLOPHOSPHAMIDE\DOXORUBICIN\PREDNISONE\VINCRISTINE
     Indication: Marginal zone lymphoma
     Dosage: UNK
     Dates: start: 201903, end: 201907
  9. RITUXIMAB [Suspect]
     Active Substance: RITUXIMAB
     Indication: Marginal zone lymphoma
     Dosage: UNK (WITH CHOP)
     Dates: start: 201903, end: 201907
  10. BENDAMUSTINE [Suspect]
     Active Substance: BENDAMUSTINE
     Indication: Marginal zone lymphoma
     Dosage: UNK
     Dates: start: 202011

REACTIONS (8)
  - Nausea [Unknown]
  - Tremor [Unknown]
  - Rash pruritic [Unknown]
  - Intentional product use issue [Unknown]
  - Pain [Unknown]
  - Cytopenia [Unknown]
  - COVID-19 [Unknown]
  - Vomiting [Unknown]
